FAERS Safety Report 9876907 (Version 3)
Quarter: 2014Q2

REPORT INFORMATION
  Report Type: Spontaneous
  Country: US (occurrence: US)
  Receive Date: 20140206
  Receipt Date: 20140409
  Transmission Date: 20141212
  Serious: No
  Sender: FDA-Public Use
  Company Number: US-PFIZER INC-2014030416

PATIENT
  Age: 61 Year
  Sex: Male

DRUGS (18)
  1. XALKORI [Suspect]
     Indication: LUNG NEOPLASM MALIGNANT
     Dosage: 250 MG, UNK
     Dates: start: 20140115
  2. XALKORI [Suspect]
     Dosage: UNK
  3. ATIVAN [Concomitant]
  4. VITAMIN B COMPLEX [Concomitant]
     Dosage: UNK
  5. CHROMIUM [Concomitant]
  6. CINNAMON [Concomitant]
  7. COMPAZINE [Concomitant]
     Dosage: UNK
  8. DOCUSATE CALCIUM [Concomitant]
     Dosage: UNK
  9. EMEND [Concomitant]
  10. FLAX SEED OIL [Concomitant]
  11. FOLIC ACID [Concomitant]
  12. IRON [Concomitant]
  13. KELP [Concomitant]
  14. MAGNESIUM [Concomitant]
  15. MILK THISTLE [Concomitant]
  16. SELENIUM [Concomitant]
  17. SENOKOT [Concomitant]
  18. ZOFRAN [Concomitant]

REACTIONS (4)
  - Dyspepsia [Unknown]
  - Disease progression [Unknown]
  - Lung neoplasm malignant [Unknown]
  - Lung disorder [Unknown]
